FAERS Safety Report 23572707 (Version 1)
Quarter: 2024Q1

REPORT INFORMATION
  Report Type: Spontaneous
  Country: US (occurrence: US)
  Receive Date: 20240227
  Receipt Date: 20240227
  Transmission Date: 20240410
  Serious: No
  Sender: FDA-Public Use
  Company Number: US-AVADEL CNS PHARMACEUTICALS, LLC-2024AVA00021

PATIENT
  Age: 38 Year
  Sex: Male

DRUGS (4)
  1. LUMRYZ [Suspect]
     Active Substance: SODIUM OXYBATE
     Indication: Narcolepsy
     Dosage: 6 G, 1X/DAY PER NIGHT AT BEDTIME
     Dates: start: 20231230
  2. WAKIX [Concomitant]
     Active Substance: PITOLISANT HYDROCHLORIDE
  3. AZELASTINE HYDROCHLORIDE [Concomitant]
     Active Substance: AZELASTINE HYDROCHLORIDE
  4. MELOXICAM [Concomitant]
     Active Substance: MELOXICAM

REACTIONS (4)
  - Middle insomnia [Unknown]
  - Terminal insomnia [Unknown]
  - Poor quality sleep [Unknown]
  - Somnolence [Unknown]

NARRATIVE: CASE EVENT DATE: 20231230
